FAERS Safety Report 6194921-X (Version None)
Quarter: 2009Q2

REPORT INFORMATION
  Report Type: 
  Country: None (occurrence: None)
  Receive Date: 20090515
  Receipt Date: 20090515
  Transmission Date: 20091009
  Serious: Yes (Other)
  Sender: FDA-Public Use
  Company Number: None

PATIENT
  Sex: Female

DRUGS (1)
  1. HYDRALAZINE HYDROCHLORIDE [Suspect]
     Indication: HYPERTENSIVE CRISIS
     Dosage: HYDRALAZINE 15MG PRN IV
     Route: 042
     Dates: start: 20090513, end: 20090513

REACTIONS (1)
  - ANGIOEDEMA [None]
